FAERS Safety Report 18487340 (Version 1)
Quarter: 2020Q4

REPORT INFORMATION
  Report Type: Report from Study
  Country: FR (occurrence: FR)
  Receive Date: 20201110
  Receipt Date: 20201110
  Transmission Date: 20210114
  Serious: Yes (Other)
  Sender: FDA-Public Use
  Company Number: NVSC2020FR290906

PATIENT

DRUGS (7)
  1. GENVOYA [Concomitant]
     Active Substance: COBICISTAT\ELVITEGRAVIR\EMTRICITABINE\TENOFOVIR ALAFENAMIDE FUMARATE
     Indication: HIV TEST POSITIVE
     Dosage: UNK
     Route: 048
     Dates: start: 2018
  2. OMNITROPE [Suspect]
     Active Substance: SOMATROPIN
     Indication: GROWTH HORMONE DEFICIENCY
     Dosage: 5 MG (5 MG/1.5 ML SOLUTION FOR INJECTION)
     Route: 058
     Dates: start: 20150611
  3. ANDROTARDYL [Concomitant]
     Active Substance: TESTOSTERONE
     Indication: LUTEINISING HORMONE DEFICIENCY
     Dosage: UNK
     Route: 030
     Dates: start: 20120509
  4. ANDROTARDYL [Concomitant]
     Active Substance: TESTOSTERONE
     Indication: FOLLICLE STIMULATING HORMONE DEFICIENCY
  5. ATRIPLA [Concomitant]
     Active Substance: EFAVIRENZ\EMTRICITABINE\TENOFOVIR DISOPROXIL FUMARATE
     Indication: HIV TEST POSITIVE
     Dosage: UNK
     Route: 048
     Dates: start: 2018
  6. HYDROCORTISONE. [Concomitant]
     Active Substance: HYDROCORTISONE
     Indication: ADRENOCORTICOTROPIC HORMONE DEFICIENCY
     Dosage: UNK
     Route: 048
     Dates: start: 2016
  7. LEVOTHYROX [Concomitant]
     Active Substance: LEVOTHYROXINE
     Indication: BLOOD THYROID STIMULATING HORMONE DECREASED
     Dosage: UNK
     Route: 048
     Dates: start: 20120116

REACTIONS (4)
  - White blood cell count decreased [Not Recovered/Not Resolved]
  - Tooth disorder [Unknown]
  - Night sweats [Not Recovered/Not Resolved]
  - Sciatica [Unknown]

NARRATIVE: CASE EVENT DATE: 202001
